FAERS Safety Report 18435118 (Version 1)
Quarter: 2020Q4

REPORT INFORMATION
  Report Type: Spontaneous
  Country: EG (occurrence: EG)
  Receive Date: 20201027
  Receipt Date: 20201027
  Transmission Date: 20210114
  Serious: Yes (Life-Threatening, Hospitalization)
  Sender: FDA-Public Use
  Company Number: EG-NOVOPROD-761460

PATIENT
  Age: 54 Year
  Sex: Female
  Weight: 105 kg

DRUGS (7)
  1. DILATROL [Concomitant]
     Indication: HYPERTENSION
     Dosage: FROM 12 YEARS AGO, ONCE DAILY
     Route: 048
  2. MIXTARD 30 HM PENFILL [Suspect]
     Active Substance: INSULIN HUMAN
     Indication: PRODUCT USED FOR UNKNOWN INDICATION
     Dosage: 10 IU, QD (FROM ABOUT 6 YEARS)
     Route: 058
  3. JANUMET [Concomitant]
     Active Substance: METFORMIN HYDROCHLORIDE\SITAGLIPTIN PHOSPHATE
     Indication: DIABETES MELLITUS
     Dosage: 50/1000 QD, FROM 6 YEARS
     Route: 048
  4. NEURIMAX [Concomitant]
     Indication: VITAMIN SUPPLEMENTATION
     Dosage: TWICE DAILY FROM 4 YEARS
     Route: 048
  5. COBAL F [Concomitant]
     Indication: VITAMIN SUPPLEMENTATION
     Dosage: FROM 4 YEARS  TWICE DAILY
     Route: 048
  6. MIXTARD 30 HM PENFILL [Suspect]
     Active Substance: INSULIN HUMAN
     Dosage: 30 IU, BID (30-0-30)
     Route: 058
     Dates: start: 202005
  7. DAFLON [DIOSMIN;HESPERIDIN] [Concomitant]
     Active Substance: DIOSMIN\HESPERIDIN
     Indication: HYPERTENSION
     Dosage: TWICE DAILY  FROM 10 YEARS AGO
     Route: 048

REACTIONS (1)
  - Diabetic coma [Unknown]

NARRATIVE: CASE EVENT DATE: 202010
